FAERS Safety Report 8059983-3 (Version None)
Quarter: 2012Q1

REPORT INFORMATION
  Report Type: 
  Country: None (occurrence: None)
  Receive Date: 20120120
  Receipt Date: 20120116
  Transmission Date: 20120608
  Serious: Yes (Life-Threatening, Hospitalization)
  Sender: FDA-Public Use
  Company Number: DE-JNJFOC-20110912129

PATIENT
  Sex: Female
  Weight: 80 kg

DRUGS (7)
  1. RISPERDAL CONSTA [Suspect]
     Route: 030
     Dates: start: 20111012, end: 20111012
  2. SEROQUEL [Concomitant]
     Indication: PSYCHOTIC DISORDER
     Route: 048
  3. MIRTAZAPINE [Concomitant]
     Indication: PSYCHOTIC DISORDER
     Route: 048
  4. MIRTAZAPINE [Concomitant]
     Indication: DEPRESSION
     Route: 048
  5. RISPERDAL CONSTA [Suspect]
     Indication: PSYCHOTIC DISORDER
     Route: 030
     Dates: end: 20110914
  6. RISPERDAL CONSTA [Suspect]
     Route: 030
     Dates: start: 20110928, end: 20110928
  7. ZOPICLON [Interacting]
     Indication: SLEEP DISORDER
     Route: 048

REACTIONS (3)
  - DRUG INTERACTION [None]
  - BASAL GANGLIA INFARCTION [None]
  - HEMIPARESIS [None]
